FAERS Safety Report 8276712-9 (Version None)
Quarter: 2012Q2

REPORT INFORMATION
  Report Type: 
  Country: None (occurrence: None)
  Receive Date: 20120412
  Receipt Date: 20120412
  Transmission Date: 20120825
  Serious: Yes (Other)
  Sender: FDA-Public Use
  Company Number: None

PATIENT
  Age: 59 Year
  Sex: Female
  Weight: 77.11 kg

DRUGS (1)
  1. NORETHINDRONE AND ESTRADIOL [Suspect]
     Indication: POSTMENOPAUSE
     Dosage: 1 TABLET
     Route: 048
     Dates: start: 20120216, end: 20120221

REACTIONS (4)
  - NIPPLE PAIN [None]
  - VAGINAL DISCHARGE [None]
  - PRODUCT SUBSTITUTION ISSUE [None]
  - FEELING ABNORMAL [None]
